FAERS Safety Report 7285123-4 (Version None)
Quarter: 2011Q1

REPORT INFORMATION
  Report Type: 
  Country: None (occurrence: None)
  Receive Date: 20110210
  Receipt Date: 20110131
  Transmission Date: 20110831
  Serious: Yes (Hospitalization)
  Sender: FDA-Public Use
  Company Number: PHHY2010CA62187

PATIENT
  Sex: Female

DRUGS (2)
  1. EXJADE [Suspect]
     Dosage: UNK
     Route: 048
  2. EXJADE [Suspect]
     Indication: HAEMOLYTIC ANAEMIA
     Dosage: 1750 MG, QD
     Route: 048
     Dates: start: 20080501

REACTIONS (6)
  - HAEMOGLOBIN DECREASED [None]
  - PAIN IN EXTREMITY [None]
  - FATIGUE [None]
  - ABDOMINAL DISCOMFORT [None]
  - URINE COLOUR ABNORMAL [None]
  - OEDEMA PERIPHERAL [None]
